FAERS Safety Report 9301851 (Version 1)
Quarter: 2013Q2

REPORT INFORMATION
  Report Type: Other
  Country: DE (occurrence: DE)
  Receive Date: 20130521
  Receipt Date: 20130521
  Transmission Date: 20140414
  Serious: Yes (Congenital Anomaly)
  Sender: FDA-Public Use
  Company Number: DE-NICOBRDEVP-2013-08409

PATIENT
  Sex: Male
  Weight: 3 kg

DRUGS (3)
  1. RAMIPRIL (UNKNOWN) [Suspect]
     Indication: HYPERTENSION
     Dosage: ^5 [MG/D ]^
     Route: 064
     Dates: start: 20111227, end: 20120227
  2. FOLIC ACID [Concomitant]
     Indication: PROPHYLAXIS OF NEURAL TUBE DEFECT
     Dosage: 0.4 [MG/D]
     Route: 064
     Dates: start: 20120217, end: 20121007
  3. L-THYROXIN [Concomitant]
     Indication: HYPOTHYROIDISM
     Dosage: 50 [?G/D]
     Route: 064
     Dates: start: 20111227, end: 20121007

REACTIONS (2)
  - Ventricular septal defect [Recovering/Resolving]
  - Talipes [Unknown]
